FAERS Safety Report 10589476 (Version 1)
Quarter: 2014Q4

REPORT INFORMATION
  Report Type: Spontaneous
  Country: US (occurrence: None)
  Receive Date: 20141114
  Receipt Date: 20141114
  Transmission Date: 20150529
  Serious: Yes (Hospitalization, Disabling, Other)
  Sender: FDA-Public Use
  Company Number: US-ZYDUS-005501

PATIENT
  Age: 55 Year
  Sex: Female

DRUGS (3)
  1. AZATHIOPRINE (AZATHIOPRINE) [Suspect]
     Active Substance: AZATHIOPRINE
  2. METHOTREXATE (METHOTREXATE) [Suspect]
     Active Substance: METHOTREXATE
  3. TACROLIMUS (TACROLIMUS) [Suspect]
     Active Substance: TACROLIMUS

REACTIONS (9)
  - Oesophageal candidiasis [None]
  - Aphasia [None]
  - Insomnia [None]
  - Fatigue [None]
  - Gingival bleeding [None]
  - Colitis [None]
  - Malnutrition [None]
  - Tremor [None]
  - Blindness [None]
